FAERS Safety Report 16422785 (Version 2)
Quarter: 2019Q3

REPORT INFORMATION
  Report Type: Report from Study
  Country: US (occurrence: US)
  Receive Date: 20190612
  Receipt Date: 20190708
  Transmission Date: 20191004
  Serious: Yes (Other)
  Sender: FDA-Public Use
  Company Number: US-SA-2019SA157029

PATIENT
  Age: 75 Year
  Sex: Male

DRUGS (2)
  1. ALIROCUMAB [Suspect]
     Active Substance: ALIROCUMAB
     Indication: BLOOD CHOLESTEROL
     Dosage: 75 MG, QOW
  2. ALIROCUMAB [Suspect]
     Active Substance: ALIROCUMAB
     Dosage: UNK UNK, QOW
     Dates: start: 20190406

REACTIONS (10)
  - Retinal detachment [Unknown]
  - Cough [Unknown]
  - Arteriosclerosis [Unknown]
  - Influenza like illness [Not Recovered/Not Resolved]
  - Condition aggravated [Not Recovered/Not Resolved]
  - Muscle spasms [Not Recovered/Not Resolved]
  - Asthenia [Not Recovered/Not Resolved]
  - Muscular weakness [Unknown]
  - Pain [Unknown]
  - Quality of life decreased [Unknown]
